FAERS Safety Report 6537254-1 (Version None)
Quarter: 2010Q1

REPORT INFORMATION
  Report Type: 
  Country: None (occurrence: None)
  Receive Date: 20100114
  Receipt Date: 20100108
  Transmission Date: 20100710
  Serious: Yes (Other)
  Sender: FDA-Public Use
  Company Number: FR-ROCHE-678628

PATIENT
  Sex: Female

DRUGS (16)
  1. RIVOTRIL [Suspect]
     Indication: PAIN
     Route: 048
     Dates: start: 20090222, end: 20090223
  2. LEXOMIL [Suspect]
     Indication: DRUG USE FOR UNKNOWN INDICATION
     Route: 048
     Dates: start: 20090219, end: 20090226
  3. NEURONTIN [Suspect]
     Indication: PAIN
     Dosage: FREQUENCY: DAILY
     Route: 048
     Dates: start: 20090219, end: 20090224
  4. NEURONTIN [Suspect]
     Route: 048
     Dates: start: 20090225
  5. NEURONTIN [Suspect]
     Route: 048
     Dates: start: 20090226
  6. COLTRAMYL [Suspect]
     Indication: DRUG USE FOR UNKNOWN INDICATION
     Route: 048
     Dates: start: 20090219, end: 20090226
  7. COLTRAMYL [Suspect]
     Route: 048
     Dates: start: 20090101
  8. TOPALGIC [Suspect]
     Indication: PAIN
     Dosage: DRUG REPORTED: TOPALGIC LP 200
     Route: 048
     Dates: start: 20090219, end: 20090224
  9. TOPALGIC [Suspect]
     Route: 048
     Dates: start: 20090225
  10. TOPALGIC [Suspect]
     Route: 048
     Dates: start: 20090226, end: 20090101
  11. NEXIUM [Suspect]
     Indication: DRUG USE FOR UNKNOWN INDICATION
     Dosage: DRUG REPORTED: INEXIUM 40
     Route: 048
     Dates: start: 20090219, end: 20090226
  12. ACTISKENAN [Suspect]
     Indication: PAIN
     Dosage: DRUG REPORTED: ACTISKENAN 10
     Route: 065
     Dates: start: 20090219, end: 20090224
  13. ACTISKENAN [Suspect]
     Route: 065
     Dates: start: 20090226, end: 20090101
  14. NOCTRAN [Suspect]
     Indication: DRUG USE FOR UNKNOWN INDICATION
     Dosage: DRUG REPORTED: NOCTRAN 10, 2 TABLETS AT BED TIME
     Route: 048
     Dates: start: 20090119, end: 20090226
  15. CELESTAMINE TAB [Concomitant]
  16. KETOPROFEN [Concomitant]

REACTIONS (2)
  - BALANCE DISORDER [None]
  - FALL [None]
